FAERS Safety Report 18974105 (Version 2)
Quarter: 2021Q1

REPORT INFORMATION
  Report Type: Spontaneous
  Country: DE (occurrence: DE)
  Receive Date: 20210305
  Receipt Date: 20210325
  Transmission Date: 20210420
  Serious: Yes (Life-Threatening, Other)
  Sender: FDA-Public Use
  Company Number: DE-ORGANON-O2103DEU000170

PATIENT
  Sex: Male
  Weight: 98 kg

DRUGS (7)
  1. MARCUMAR [Suspect]
     Active Substance: PHENPROCOUMON
     Indication: CARDIAC VALVE PROSTHESIS USER
     Dosage: UNK
     Route: 065
  2. RAMIPRIL. [Concomitant]
     Active Substance: RAMIPRIL
     Dosage: UNK
  3. ATOZET [Suspect]
     Active Substance: ATORVASTATIN CALCIUM\EZETIMIBE
     Dosage: UNK
  4. BIKTARVY [Suspect]
     Active Substance: BICTEGRAVIR SODIUM\EMTRICITABINE\TENOFOVIR ALAFENAMIDE FUMARATE
     Indication: HIV INFECTION
     Dosage: 1 DOSAGE FORM
     Route: 048
  5. ATORVASTATIN [Concomitant]
     Active Substance: ATORVASTATIN
     Dosage: UNK
  6. BISOPROLOL [Concomitant]
     Active Substance: BISOPROLOL
     Dosage: UNK
  7. MARCUMAR [Suspect]
     Active Substance: PHENPROCOUMON
     Dosage: 1 DOSAGE FORM, QD
     Route: 065

REACTIONS (2)
  - International normalised ratio abnormal [Recovered/Resolved]
  - Internal haemorrhage [Unknown]

NARRATIVE: CASE EVENT DATE: 202012
